FAERS Safety Report 12712323 (Version 1)
Quarter: 2016Q3

REPORT INFORMATION
  Report Type: Spontaneous
  Country: US (occurrence: US)
  Receive Date: 20160902
  Receipt Date: 20160902
  Transmission Date: 20161109
  Serious: No
  Sender: FDA-Public Use
  Company Number: US-ACTAVIS-2015-12137

PATIENT
  Age: 77 Year
  Sex: Female

DRUGS (1)
  1. NIFEDIPINE (AELLC) [Suspect]
     Active Substance: NIFEDIPINE
     Indication: OESOPHAGEAL SPASM
     Dosage: 10 MG, UNKNOWN
     Route: 048

REACTIONS (2)
  - Oral discomfort [Unknown]
  - Wrong technique in product usage process [Unknown]
